FAERS Safety Report 10213763 (Version 1)
Quarter: 2014Q2

REPORT INFORMATION
  Report Type: Other
  Country: NL (occurrence: NL)
  Receive Date: 20140603
  Receipt Date: 20140603
  Transmission Date: 20141212
  Serious: Yes (Life-Threatening, Hospitalization)
  Sender: FDA-Public Use
  Company Number: NL-ASTELLAS-2014EU006762

PATIENT
  Age: 63 Year
  Sex: Female

DRUGS (6)
  1. BETMIGA [Suspect]
     Indication: URINARY INCONTINENCE
     Route: 065
     Dates: start: 20140507, end: 20140513
  2. BARNIDIPINE [Interacting]
     Indication: HYPERTENSION
     Route: 065
     Dates: start: 2012, end: 20140512
  3. JANUMET [Interacting]
     Indication: DIABETES MELLITUS
     Dosage: UNK UNK, UNKNOWN FREQ.
     Route: 065
     Dates: start: 2012, end: 20140512
  4. VALSARTAN/HYDROCHLOROTHIAZIDE [Interacting]
     Indication: HYPERTENSION
     Route: 065
     Dates: start: 2012, end: 20140512
  5. CRESTOR [Interacting]
     Indication: DIABETES MELLITUS
     Route: 065
     Dates: start: 2012
  6. BISOPROLOL [Interacting]
     Indication: HYPERTENSION
     Route: 065
     Dates: start: 2012, end: 20140512

REACTIONS (5)
  - Blood creatine phosphokinase increased [Recovered/Resolved]
  - Lactic acidosis [Recovered/Resolved]
  - Renal failure [Recovering/Resolving]
  - Urosepsis [Recovered/Resolved]
  - Drug interaction [Recovered/Resolved]
